FAERS Safety Report 13850106 (Version 3)
Quarter: 2017Q4

REPORT INFORMATION
  Report Type: Report from Study
  Country: US (occurrence: US)
  Receive Date: 20170809
  Receipt Date: 20171003
  Transmission Date: 20180320
  Serious: Yes (Hospitalization)
  Sender: FDA-Public Use
  Company Number: US-UCBSA-2017014929

PATIENT
  Age: 30 Year
  Sex: Female
  Weight: 71 kg

DRUGS (7)
  1. LEVETIRACETAM. [Suspect]
     Active Substance: LEVETIRACETAM
     Dosage: 2000 MG IN THE MORNING, 1000 MG IN THE AFTERNOON AND 2000 MG AT NIGHT
     Route: 048
     Dates: start: 201709
  2. CARBAMAZEPINE. [Concomitant]
     Active Substance: CARBAMAZEPINE
     Indication: SEIZURE
     Dosage: 600 MG, 3X/DAY (TID)
     Dates: start: 2002
  3. LEVETIRACETAM. [Suspect]
     Active Substance: LEVETIRACETAM
     Dosage: 2000 MG IN THE MORNING, 1500 IN THE AFTERNOON AND 2000 MG AT NIGHT
     Route: 048
     Dates: start: 20170727, end: 201709
  4. LEVETIRACETAM. [Suspect]
     Active Substance: LEVETIRACETAM
     Dosage: 2000 MG IN THE MORNING, 500 MG IN THE AFTERNOON AND 2000 MG AT NIGHT
     Route: 048
     Dates: start: 201709
  5. VIMPAT [Suspect]
     Active Substance: LACOSAMIDE
     Indication: EPILEPSY
     Dosage: 200 MG, 2X/DAY (BID)
     Route: 048
     Dates: end: 201708
  6. LEVETIRACETAM. [Suspect]
     Active Substance: LEVETIRACETAM
     Indication: EPILEPSY
     Dosage: 1000 MG IN THE MORNING, 1500 IN THE AFTERNOON AND 1500 MG AT NIGHT
     Route: 048
     Dates: start: 20160614, end: 2017
  7. LEVETIRACETAM. [Suspect]
     Active Substance: LEVETIRACETAM
     Dosage: DOSE WAS GRADUALLY INCREASED
     Route: 048
     Dates: start: 2017, end: 2017

REACTIONS (9)
  - Prescribed overdose [Unknown]
  - Drug ineffective [Unknown]
  - Pregnancy [Unknown]
  - Breast feeding [Unknown]
  - Dizziness [Recovered/Resolved]
  - Off label use [Unknown]
  - Seizure [Unknown]
  - Lactation disorder [Unknown]
  - Drug dose omission [Unknown]

NARRATIVE: CASE EVENT DATE: 20160614
